FAERS Safety Report 20138420 (Version 2)
Quarter: 2021Q4

REPORT INFORMATION
  Report Type: Report from Study
  Country: CA (occurrence: CA)
  Receive Date: 20211202
  Receipt Date: 20211210
  Transmission Date: 20220303
  Serious: Yes (Other)
  Sender: FDA-Public Use
  Company Number: CA-JNJFOC-20210602827

PATIENT
  Age: 39 Year
  Sex: Male
  Weight: 138 kg

DRUGS (2)
  1. REMICADE [Suspect]
     Active Substance: INFLIXIMAB
     Indication: Crohn^s disease
     Dosage: ON 01-JUN-2021, PATIENT RECEIVED THE 88TH INFUSION OF INFLIXIMAB 600 MG AND PARTIAL HARVEY-BRADSHAW
     Route: 042
     Dates: start: 20100407
  2. REMICADE [Suspect]
     Active Substance: INFLIXIMAB
     Route: 042

REACTIONS (6)
  - Colon cancer [Unknown]
  - Abdominal pain [Unknown]
  - General physical health deterioration [Unknown]
  - Frequent bowel movements [Unknown]
  - Diarrhoea [Unknown]
  - Inappropriate schedule of product administration [Unknown]

NARRATIVE: CASE EVENT DATE: 20210531
